FAERS Safety Report 15191629 (Version 1)
Quarter: 2018Q3

REPORT INFORMATION
  Report Type: Spontaneous
  Country: US (occurrence: US)
  Receive Date: 20180724
  Receipt Date: 20180724
  Transmission Date: 20181010
  Serious: No
  Sender: FDA-Public Use
  Company Number: US-ELI_LILLY_AND_COMPANY-US201807011245

PATIENT
  Sex: Male

DRUGS (2)
  1. CYRAMZA [Suspect]
     Active Substance: RAMUCIRUMAB
     Indication: OESOPHAGEAL CARCINOMA
     Dosage: 590 MG, CYCLICAL
     Route: 042
     Dates: start: 20180208
  2. CYRAMZA [Suspect]
     Active Substance: RAMUCIRUMAB
     Indication: OESOPHAGEAL CARCINOMA
     Dosage: 590 MG, CYCLICAL
     Route: 042
     Dates: start: 20180208

REACTIONS (1)
  - Malaise [Unknown]
